FAERS Safety Report 6402138-6 (Version None)
Quarter: 2009Q4

REPORT INFORMATION
  Report Type: 
  Country: None (occurrence: None)
  Receive Date: 20091013
  Receipt Date: 20090929
  Transmission Date: 20100525
  Serious: Yes (Hospitalization, Other)
  Sender: FDA-Public Use
  Company Number: DSU-2009-02093

PATIENT
  Age: 78 Year
  Sex: Female
  Weight: 63.9572 kg

DRUGS (14)
  1. BENICAR [Suspect]
     Indication: HYPERTENSION
     Dosage: 40 MG (40 MG, QD), PER ORAL
     Route: 048
     Dates: start: 20070430
  2. AMLODIPINE [Suspect]
     Indication: HYPERTENSION
     Dosage: PER ORAL
     Route: 048
  3. CRESTOR [Concomitant]
  4. DIGOXIN (DIGOXIN) (0.125 MILLIGRAM) (DIGOXIN) [Concomitant]
  5. BISOPROLOL (BISOPROLOL) (5 MILLIGRAM) (BISOPROLOL) [Concomitant]
  6. WARFARIN (WARFARIN) (2.5 MILLIGRAM) (BISOPROLOL) [Concomitant]
  7. FOLIC ACID (FOLIC ACID) (400 MICROGRAM) (FOLIC ACID) [Concomitant]
  8. CALCIUM WITH VITAMIN D (ERGOCALCIFEROL, CALCIUM PHOSPHATE, CALCIUM SOD [Concomitant]
  9. HYDROCHLOROTHIAZIDE (HYDROCHLOROTHIAZIDE) (25 MILLIGRAM) (HYDROCHLOROT [Concomitant]
  10. PEPCID (FAMOTIDINE) (20 MILLIGRAM) (FAMOTIDINE) [Concomitant]
  11. DARVOCET (PARACETAMOL, DEXTROPROPOXYPHENE NAPSILATE) (PARACETAMOL, DEX [Concomitant]
  12. EXCEDRIN (CAFFEINE, PARACETAMOL) (CAFFEINE, PARACETAMOL) [Concomitant]
  13. AMOXICILLIN (AMOXICILLIN) (500 MILLIGRAM) (AMOXICILLIN) [Concomitant]
  14. ASPIRIN (ACETYLSALICYLIC ACID) (81 MILLIGRAM) (ACETYLSALICYLIC ACID) [Concomitant]

REACTIONS (5)
  - ALCOHOL USE [None]
  - CARDIAC PERFORATION [None]
  - DIZZINESS [None]
  - OEDEMA PERIPHERAL [None]
  - SCIATICA [None]
